FAERS Safety Report 4543804-7 (Version None)
Quarter: 2005Q1

REPORT INFORMATION
  Report Type: 
  Country: None (occurrence: None)
  Receive Date: 20050103
  Receipt Date: 20041222
  Transmission Date: 20050727
  Serious: Yes (Other)
  Sender: FDA-Public Use
  Company Number: 2004118846

PATIENT
  Age: 33 Year
  Sex: Male
  Weight: 86.1834 kg

DRUGS (1)
  1. SUDAFED COLD AND COUGH (PARACETAMOL, PSEUDOEPHEDRINE, DEXTROMETHORPHAN [Suspect]
     Indication: SINUS CONGESTION
     Dosage: 2 LIQUIDCAPS ONCE,ORAL
     Route: 048
     Dates: start: 20041220, end: 20041220

REACTIONS (2)
  - FOREIGN BODY TRAUMA [None]
  - OESOPHAGEAL ULCER [None]
